FAERS Safety Report 24715266 (Version 1)
Quarter: 2024Q4

REPORT INFORMATION
  Report Type: Spontaneous
  Country: US (occurrence: US)
  Receive Date: 20241210
  Receipt Date: 20241210
  Transmission Date: 20250114
  Serious: Yes (Other)
  Sender: COOPERSURGICAL
  Company Number: US-COOPERSURGICAL, INC.-2024CPS003780

PATIENT
  Age: 27 Year
  Sex: Female
  Weight: 62.132 kg

DRUGS (1)
  1. PARAGARD T 380A [Suspect]
     Active Substance: COPPER
     Indication: Contraception
     Dosage: UNK
     Route: 015
     Dates: start: 20070601

REACTIONS (15)
  - Reproductive complication associated with device [Not Recovered/Not Resolved]
  - Hysterectomy [Unknown]
  - Device breakage [Recovered/Resolved]
  - Foreign body in reproductive tract [Recovered/Resolved]
  - Complication of device removal [Recovered/Resolved]
  - Psychological trauma [Unknown]
  - Animal bite [Unknown]
  - Mental disorder [Unknown]
  - Device issue [Recovered/Resolved]
  - Menopausal symptoms [Unknown]
  - Heart rate decreased [Unknown]
  - Constipation [Unknown]
  - Feeling abnormal [Recovered/Resolved]
  - Pelvic pain [Unknown]
  - Dyspareunia [Unknown]

NARRATIVE: CASE EVENT DATE: 20130201
